FAERS Safety Report 9090056 (Version 1)
Quarter: 2013Q1

REPORT INFORMATION
  Report Type: Spontaneous
  Country: SI (occurrence: SI)
  Receive Date: 20130201
  Receipt Date: 20130201
  Transmission Date: 20140127
  Serious: Yes (Death)
  Sender: FDA-Public Use
  Company Number: SI-MERCK-1301SVN013249

PATIENT
  Age: 32 Year
  Sex: Male

DRUGS (6)
  1. PEGINTRON [Suspect]
     Indication: CHRONIC HEPATITIS C
     Dosage: UNK
     Dates: start: 20120621, end: 20121214
  2. REBETOL [Suspect]
     Indication: CHRONIC HEPATITIS C
     Dosage: UNK
     Route: 048
     Dates: start: 20120621, end: 20121214
  3. LEKADOL [Concomitant]
     Indication: MYALGIA
  4. LEKADOL [Concomitant]
     Indication: HEADACHE
  5. NAPROSYN [Concomitant]
     Indication: MYALGIA
  6. NAPROSYN [Concomitant]
     Indication: HEADACHE

REACTIONS (2)
  - Completed suicide [Fatal]
  - Limb injury [Unknown]
